FAERS Safety Report 15233244 (Version 1)
Quarter: 2018Q3

REPORT INFORMATION
  Report Type: Spontaneous
  Country: DE (occurrence: DE)
  Receive Date: 20180802
  Receipt Date: 20180802
  Transmission Date: 20181010
  Serious: Yes (Congenital Anomaly, Other)
  Sender: FDA-Public Use
  Company Number: DE-SA-2018SA181582

PATIENT
  Sex: Female

DRUGS (10)
  1. METHYLDOPA. [Suspect]
     Active Substance: METHYLDOPA
     Dosage: UNK UNK, UNK
     Route: 064
  2. INDAPAMIDE. [Suspect]
     Active Substance: INDAPAMIDE
     Route: 064
  3. METFORMIN HYDROCHLORIDE. [Suspect]
     Active Substance: METFORMIN HYDROCHLORIDE
     Dosage: UNK UNK, UNK
     Route: 064
  4. ALISKIREN [Suspect]
     Active Substance: ALISKIREN
     Indication: PRODUCT USED FOR UNKNOWN INDICATION
     Dosage: UNK UNK, UNK
     Route: 064
  5. PERINDOPRIL [Suspect]
     Active Substance: PERINDOPRIL
     Route: 064
  6. METOPROLOL SALT NOT SPECIFIED [Suspect]
     Active Substance: METOPROLOL
     Dosage: UNK UNK, UNK
     Route: 064
  7. AMLODIPINE [Suspect]
     Active Substance: AMLODIPINE BESYLATE
     Indication: PRODUCT USED FOR UNKNOWN INDICATION
     Route: 064
  8. INSULIN [Suspect]
     Active Substance: INSULIN NOS
     Indication: PRODUCT USED FOR UNKNOWN INDICATION
     Dosage: UNK, UNK
     Route: 064
  9. HYDROCHLOROTHIAZIDE. [Suspect]
     Active Substance: HYDROCHLOROTHIAZIDE
     Dosage: UNK UNK, UNK
     Route: 064
  10. BISOPROLOL SALT NOT SPECIFIED [Suspect]
     Active Substance: BISOPROLOL
     Dosage: UNK UNK, UNK
     Route: 064

REACTIONS (7)
  - Intestinal malrotation [Unknown]
  - Limb malformation [Unknown]
  - Conjoined twins [Unknown]
  - Persistent cloaca [Unknown]
  - Urachal abnormality [Unknown]
  - Congenital bladder anomaly [Unknown]
  - Foetal exposure during pregnancy [Unknown]
